FAERS Safety Report 10272765 (Version 1)
Quarter: 2014Q2

REPORT INFORMATION
  Report Type: Spontaneous
  Country: US (occurrence: None)
  Receive Date: 20140627
  Receipt Date: 20140627
  Transmission Date: 20141212
  Serious: Yes (Other)
  Sender: FDA-Public Use
  Company Number: None

PATIENT
  Sex: 0

DRUGS (1)
  1. LIDOCAINE 1% [Suspect]
     Route: 062
     Dates: start: 20140617, end: 20140619

REACTIONS (3)
  - Product label issue [None]
  - Circumstance or information capable of leading to medication error [None]
  - No adverse event [None]
